FAERS Safety Report 13206122 (Version 1)
Quarter: 2017Q1

REPORT INFORMATION
  Report Type: Spontaneous
  Country: US (occurrence: US)
  Receive Date: 20170208
  Receipt Date: 20170208
  Transmission Date: 20170428
  Serious: Yes (Other)
  Sender: FDA-Public Use
  Company Number: None

PATIENT
  Age: 61 Year
  Sex: Female
  Weight: 89.55 kg

DRUGS (2)
  1. VALSARTAN 160 [Suspect]
     Active Substance: VALSARTAN
     Indication: HYPERTENSION
     Dosage: ?          QUANTITY:30 TABLET(S);?
     Route: 048
     Dates: start: 20151115
  2. MULTI-VITAMINS [Concomitant]

REACTIONS (2)
  - Alopecia [None]
  - Androgenetic alopecia [None]

NARRATIVE: CASE EVENT DATE: 20161201
